FAERS Safety Report 6568504-3 (Version None)
Quarter: 2010Q1

REPORT INFORMATION
  Report Type: 
  Country: None (occurrence: None)
  Receive Date: 20100203
  Receipt Date: 20100128
  Transmission Date: 20100710
  Serious: Yes (Hospitalization)
  Sender: FDA-Public Use
  Company Number: B0630835A

PATIENT
  Sex: Male
  Weight: 85 kg

DRUGS (4)
  1. MALARONE [Suspect]
     Indication: MALARIA PROPHYLAXIS
     Route: 048
     Dates: start: 20091130, end: 20091208
  2. ASCAL [Suspect]
     Indication: PROPHYLAXIS
     Route: 048
     Dates: start: 19920101, end: 20091208
  3. TAMBOCOR [Concomitant]
     Route: 048
     Dates: start: 19990101
  4. LIPITOR [Concomitant]
     Dosage: 10MG PER DAY
     Route: 048
     Dates: start: 19940101

REACTIONS (4)
  - C-REACTIVE PROTEIN INCREASED [None]
  - ERYTHEMA MULTIFORME [None]
  - PYREXIA [None]
  - WHITE BLOOD CELL COUNT [None]
